FAERS Safety Report 19238913 (Version 5)
Quarter: 2021Q4

REPORT INFORMATION
  Report Type: Report from Study
  Country: CO (occurrence: CO)
  Receive Date: 20210510
  Receipt Date: 20211231
  Transmission Date: 20220303
  Serious: Yes (Other)
  Sender: FDA-Public Use
  Company Number: CO-ABBVIE-21K-036-3897332-00

PATIENT
  Sex: Female
  Weight: 70 kg

DRUGS (5)
  1. HUMIRA [Suspect]
     Active Substance: ADALIMUMAB
     Indication: Rheumatoid arthritis
     Route: 058
     Dates: start: 20090310
  2. HUMIRA [Suspect]
     Active Substance: ADALIMUMAB
     Indication: Rheumatoid arthritis
     Route: 058
     Dates: end: 20210410
  3. HUMIRA [Suspect]
     Active Substance: ADALIMUMAB
     Route: 058
     Dates: start: 2021, end: 20211122
  4. COVID-19 VACCINE NOS [Suspect]
     Active Substance: COVID-19 VACCINE NOS
     Indication: COVID-19 immunisation
     Route: 030
     Dates: start: 20210507, end: 20210507
  5. CEPHALEXIN [Suspect]
     Active Substance: CEPHALEXIN
     Indication: Adverse event
     Route: 065

REACTIONS (42)
  - Glaucoma [Recovering/Resolving]
  - Choking [Recovering/Resolving]
  - Cataract [Recovering/Resolving]
  - Depression [Recovering/Resolving]
  - Oxygen saturation decreased [Recovering/Resolving]
  - Musculoskeletal disorder [Recovering/Resolving]
  - Ulcer [Recovering/Resolving]
  - Onychomadesis [Recovering/Resolving]
  - Malaise [Recovered/Resolved]
  - Listless [Recovered/Resolved]
  - Ocular discomfort [Recovering/Resolving]
  - Malaise [Not Recovered/Not Resolved]
  - Pigmentation disorder [Not Recovered/Not Resolved]
  - Eye pruritus [Recovering/Resolving]
  - Acne [Not Recovered/Not Resolved]
  - Gait disturbance [Recovered/Resolved]
  - Procedural pain [Not Recovered/Not Resolved]
  - Post procedural erythema [Recovered/Resolved]
  - Post procedural swelling [Not Recovered/Not Resolved]
  - Mood altered [Recovering/Resolving]
  - Hypoaesthesia [Not Recovered/Not Resolved]
  - Dyspepsia [Recovering/Resolving]
  - Pruritus [Recovered/Resolved]
  - Pain in extremity [Recovering/Resolving]
  - Pain in extremity [Recovered/Resolved]
  - Muscle spasms [Recovering/Resolving]
  - Alopecia [Recovering/Resolving]
  - Back pain [Recovering/Resolving]
  - Pain [Recovering/Resolving]
  - Infection [Not Recovered/Not Resolved]
  - COVID-19 [Recovered/Resolved with Sequelae]
  - Post procedural infection [Not Recovered/Not Resolved]
  - Purulent discharge [Recovering/Resolving]
  - Arthropathy [Recovering/Resolving]
  - Osteoarthritis [Recovering/Resolving]
  - Neck pain [Recovering/Resolving]
  - Pyrexia [Recovered/Resolved]
  - Erythema [Recovered/Resolved]
  - Rash macular [Not Recovered/Not Resolved]
  - Muscle spasms [Not Recovered/Not Resolved]
  - Rash [Not Recovered/Not Resolved]
  - Pruritus [Not Recovered/Not Resolved]

NARRATIVE: CASE EVENT DATE: 20190101
